FAERS Safety Report 7391757-9 (Version None)
Quarter: 2011Q2

REPORT INFORMATION
  Report Type: 
  Country: None (occurrence: None)
  Receive Date: 20110404
  Receipt Date: 20110330
  Transmission Date: 20111010
  Serious: Yes (Hospitalization)
  Sender: FDA-Public Use
  Company Number: US-JNJFOC-20110309032

PATIENT
  Age: 64 Year
  Sex: Female

DRUGS (3)
  1. FAMOTIDINE [Suspect]
     Route: 048
  2. FAMOTIDINE [Suspect]
     Indication: GASTROOESOPHAGEAL REFLUX DISEASE
     Route: 048
  3. TRANXENE [Concomitant]

REACTIONS (5)
  - IRRITABLE BOWEL SYNDROME [None]
  - BRONCHITIS [None]
  - GASTROINTESTINAL HAEMORRHAGE [None]
  - CEREBROVASCULAR ACCIDENT [None]
  - PRODUCT ODOUR ABNORMAL [None]
